FAERS Safety Report 4599744-0 (Version None)
Quarter: 2005Q1

REPORT INFORMATION
  Report Type: 
  Country: None (occurrence: None)
  Receive Date: 20050304
  Receipt Date: 20050304
  Transmission Date: 20050727
  Serious: Yes (Hospitalization)
  Sender: FDA-Public Use
  Company Number: None

PATIENT
  Age: 27 Year
  Sex: Female
  Weight: 60 kg

DRUGS (4)
  1. ZOFRAN [Suspect]
     Indication: NAUSEA
     Dosage: X1   INTRAVENOU
     Route: 042
     Dates: start: 20041201, end: 20041201
  2. ZOFRAN [Suspect]
     Indication: PAIN
     Dosage: X1   INTRAVENOU
     Route: 042
     Dates: start: 20041201, end: 20041201
  3. EFFEXOR XR [Concomitant]
  4. VICODIN [Concomitant]

REACTIONS (7)
  - ANXIETY [None]
  - DYSPHAGIA [None]
  - DYSTONIA [None]
  - INTERMITTENT CLAUDICATION [None]
  - JOINT STIFFNESS [None]
  - RESTLESSNESS [None]
  - TRISMUS [None]
